FAERS Safety Report 15011030 (Version 1)
Quarter: 2018Q2

REPORT INFORMATION
  Report Type: Spontaneous
  Country: SE (occurrence: SE)
  Receive Date: 20180614
  Receipt Date: 20180614
  Transmission Date: 20180711
  Serious: Yes (Death, Other)
  Sender: FDA-Public Use
  Company Number: SE-APOTEX-2018AP015853

PATIENT
  Age: 55 Year
  Sex: Male

DRUGS (2)
  1. CITALOPRAM [Suspect]
     Active Substance: CITALOPRAM HYDROBROMIDE
     Indication: PRODUCT USED FOR UNKNOWN INDICATION
     Dosage: UNK
     Route: 065
  2. LITHIUM. [Suspect]
     Active Substance: LITHIUM
     Indication: PRODUCT USED FOR UNKNOWN INDICATION
     Route: 065

REACTIONS (8)
  - Toxicity to various agents [Fatal]
  - Myocardial fibrosis [Fatal]
  - Brain oedema [Fatal]
  - Respiratory tract haemorrhage [Fatal]
  - Gastrointestinal haemorrhage [Fatal]
  - Cardiomegaly [Fatal]
  - Renal disorder [Fatal]
  - Lipomatosis [Fatal]
